FAERS Safety Report 8281981 (Version 2)
Quarter: 2012Q4

REPORT INFORMATION
  Report Type: 
  Country: US (occurrence: US)
  Receive Date: 20111209
  Receipt Date: 20121226
  Transmission Date: 20130627
  Serious: Yes (Hospitalization, Congenital Anomaly, Other)
  Sender: FDA-Public Use
  Company Number: US-PFIZER INC-2011297338

PATIENT
  Sex: Male

DRUGS (9)
  1. ZOLOFT [Suspect]
     Indication: DEPRESSION
     Dosage: UNK
     Route: 064
     Dates: start: 19970212
  2. CEPHALEXIN [Concomitant]
     Dosage: UNK
     Route: 064
  3. LODINE [Concomitant]
     Dosage: UNK
     Route: 064
  4. MACRODANTIN [Concomitant]
     Dosage: UNK
     Route: 064
  5. AMOXIL [Concomitant]
     Dosage: UNK
     Route: 064
  6. PRENATAL VITAMINS [Concomitant]
     Dosage: UNK
     Route: 064
  7. XYLOCAINE [Concomitant]
     Dosage: UNK
     Route: 064
  8. PROPOXYPHENE [Concomitant]
     Dosage: UNK
     Route: 064
  9. TUMS [Concomitant]
     Dosage: UNK
     Route: 064

REACTIONS (15)
  - Maternal exposure timing unspecified [Unknown]
  - Myocarditis [Unknown]
  - Cardiomyopathy [Unknown]
  - Cardiogenic shock [Unknown]
  - Metabolic acidosis [Unknown]
  - Microcephaly [Unknown]
  - Craniosynostosis [Unknown]
  - Heart disease congenital [Unknown]
  - Osteochondrosis [Unknown]
  - Deafness [Unknown]
  - Congenital arterial malformation [Unknown]
  - Apnoea [Unknown]
  - Cognitive disorder [Unknown]
  - Communication disorder [Unknown]
  - Learning disorder [Unknown]
